FAERS Safety Report 12729189 (Version 1)
Quarter: 2016Q3

REPORT INFORMATION
  Report Type: Spontaneous
  Country: US (occurrence: US)
  Receive Date: 20160907
  Receipt Date: 20160907
  Transmission Date: 20161109
  Serious: No
  Sender: FDA-Public Use
  Company Number: None

PATIENT
  Age: 56 Year
  Sex: Male
  Weight: 116.8 kg

DRUGS (1)
  1. WARFARIN [Suspect]
     Active Substance: WARFARIN
     Indication: ATRIAL FIBRILLATION
     Route: 048

REACTIONS (7)
  - Haematocrit decreased [None]
  - Dizziness [None]
  - Haemorrhoids [None]
  - Gastric haemorrhage [None]
  - Anticoagulation drug level below therapeutic [None]
  - Haemoglobin decreased [None]
  - Large intestine polyp [None]

NARRATIVE: CASE EVENT DATE: 20160617
